FAERS Safety Report 18201742 (Version 1)
Quarter: 2020Q3

REPORT INFORMATION
  Report Type: Spontaneous
  Country: US (occurrence: US)
  Receive Date: 20200826
  Receipt Date: 20200826
  Transmission Date: 20201103
  Serious: No
  Sender: FDA-Public Use
  Company Number: None

PATIENT
  Age: 45 Year
  Sex: Female
  Weight: 72.9 kg

DRUGS (6)
  1. NOVOLIN NPH U?100 18 UNITS TWICE DAILY [Concomitant]
     Dates: start: 20190805, end: 20200429
  2. LISINOPRIL 2.5 MG DAILY [Concomitant]
     Dates: start: 20190212
  3. SERTRALINE 50 MG DAILY [Concomitant]
     Dates: start: 20190805, end: 20200429
  4. JANUMET 50/1000 MG TWICE DAILY [Concomitant]
     Dates: start: 20180918
  5. INVOKANA [Suspect]
     Active Substance: CANAGLIFLOZIN
     Indication: TYPE 2 DIABETES MELLITUS
     Route: 048
     Dates: start: 20181112, end: 20200115
  6. ATORVASTATIN 10 MG DAILY [Concomitant]
     Dates: start: 20190212

REACTIONS (2)
  - Therapy cessation [None]
  - Vulvovaginal pruritus [None]

NARRATIVE: CASE EVENT DATE: 20191210
